FAERS Safety Report 7130629-1 (Version None)
Quarter: 2010Q4

REPORT INFORMATION
  Report Type: 
  Country: None (occurrence: None)
  Receive Date: 20101101
  Receipt Date: 20100917
  Transmission Date: 20110411
  Serious: No
  Sender: FDA-Public Use
  Company Number: 2010-12466

PATIENT
  Age: 71 Year
  Sex: Male
  Weight: 63.5 kg

DRUGS (2)
  1. RAPAFLO [Suspect]
     Indication: URINARY TRACT DISORDER
     Dosage: 1 CAPSUL, DAILY, ORAL
     Route: 048
     Dates: start: 20100910
  2. NORCO [Suspect]
     Indication: PAIN
     Dosage: ORAL
     Route: 048
     Dates: start: 20100827

REACTIONS (4)
  - ANORGASMIA [None]
  - CONSTIPATION [None]
  - DYSURIA [None]
  - RETROGRADE EJACULATION [None]
